FAERS Safety Report 6040570-3 (Version None)
Quarter: 2009Q1

REPORT INFORMATION
  Report Type: 
  Country: None (occurrence: None)
  Receive Date: 20090116
  Receipt Date: 20080407
  Transmission Date: 20090719
  Serious: No
  Sender: FDA-Public Use
  Company Number: US-BRISTOL-MYERS SQUIBB COMPANY-14142905

PATIENT
  Age: 46 Year
  Sex: Male

DRUGS (3)
  1. ABILIFY [Suspect]
  2. ZOLOFT [Concomitant]
  3. ARICEPT [Concomitant]

REACTIONS (2)
  - STUPOR [None]
  - WHITE BLOOD CELL COUNT DECREASED [None]
